FAERS Safety Report 11828078 (Version 1)
Quarter: 2015Q4

REPORT INFORMATION
  Report Type: Spontaneous
  Country: US (occurrence: US)
  Receive Date: 20151211
  Receipt Date: 20151211
  Transmission Date: 20160305
  Serious: No
  Sender: FDA-Public Use
  Company Number: US-BAUSCH-BL-2015-002829

PATIENT
  Sex: Female

DRUGS (2)
  1. PHENYTOIN SODIUM ER [Concomitant]
     Active Substance: PHENYTOIN SODIUM
     Indication: PRODUCT USED FOR UNKNOWN INDICATION
  2. XENAZINE [Suspect]
     Active Substance: TETRABENAZINE
     Indication: CHOREA
     Route: 048
     Dates: start: 201111

REACTIONS (4)
  - Treatment noncompliance [Unknown]
  - Pain [Unknown]
  - Off label use [Unknown]
  - Movement disorder [Unknown]
